FAERS Safety Report 4616462-0 (Version None)
Quarter: 2005Q1

REPORT INFORMATION
  Report Type: 
  Country: None (occurrence: None)
  Receive Date: 20050318
  Receipt Date: 20050307
  Transmission Date: 20050727
  Serious: Yes (Hospitalization, Other)
  Sender: FDA-Public Use
  Company Number: HQWYE997901FEB05

PATIENT
  Age: 44 Year
  Sex: Female

DRUGS (1)
  1. ADVIL [Suspect]
     Dosage: ORAL,MANY YEARS
     Route: 048

REACTIONS (4)
  - BLOOD PRESSURE INCREASED [None]
  - GENERALISED OEDEMA [None]
  - MIGRAINE [None]
  - UNEVALUABLE EVENT [None]
